FAERS Safety Report 7581920-6 (Version None)
Quarter: 2011Q2

REPORT INFORMATION
  Report Type: 
  Country: None (occurrence: None)
  Receive Date: 20110629
  Receipt Date: 20110619
  Transmission Date: 20111010
  Serious: Yes (Other)
  Sender: FDA-Public Use
  Company Number: IT-MYLANLABS-2011S1013024

PATIENT
  Age: 55 Year
  Sex: Male

DRUGS (1)
  1. AZATHIOPRINE [Suspect]
     Indication: COLITIS
     Dosage: 2.5 MG/KG
     Route: 065

REACTIONS (3)
  - WHITE BLOOD CELL COUNT INCREASED [None]
  - MUSCULAR WEAKNESS [None]
  - HYPERSENSITIVITY [None]
